FAERS Safety Report 7943526-6 (Version None)
Quarter: 2011Q4

REPORT INFORMATION
  Report Type: 
  Country: None (occurrence: None)
  Receive Date: 20111128
  Receipt Date: 20111118
  Transmission Date: 20120403
  Serious: Yes (Hospitalization, Other)
  Sender: FDA-Public Use
  Company Number: US-BAYER-2011-025457

PATIENT
  Age: 17 Year
  Sex: Female
  Weight: 44 kg

DRUGS (3)
  1. ORTHO TRI-CYCLEN [Concomitant]
     Indication: OVARIAN CYST
     Dosage: UNK
     Dates: start: 20070101
  2. LOESTRIN 1.5/30 [Concomitant]
  3. YAZ [Suspect]
     Indication: OVARIAN CYST
     Dosage: UNK
     Dates: start: 20070101, end: 20090101

REACTIONS (4)
  - CHOLELITHIASIS [None]
  - CHOLECYSTECTOMY [None]
  - PAIN [None]
  - INJURY [None]
